FAERS Safety Report 23979682 (Version 2)
Quarter: 2025Q2

REPORT INFORMATION
  Report Type: Spontaneous
  Country: US (occurrence: US)
  Receive Date: 20240616
  Receipt Date: 20250519
  Transmission Date: 20250716
  Serious: No
  Sender: SANOFI AVENTIS
  Company Number: US-SA-SAC20230213001346

PATIENT
  Age: 58 Year
  Sex: Male

DRUGS (1)
  1. DUPIXENT [Suspect]
     Active Substance: DUPILUMAB
     Indication: Dermatitis atopic
     Dosage: 300 MG, QOW
     Route: 058

REACTIONS (9)
  - Visual impairment [Unknown]
  - Skin haemorrhage [Unknown]
  - Scratch [Unknown]
  - Rash pruritic [Unknown]
  - Insomnia [Unknown]
  - Pruritus [Unknown]
  - Dermatitis atopic [Unknown]
  - Shoulder operation [Unknown]
  - Product dose omission in error [Unknown]

NARRATIVE: CASE EVENT DATE: 20250101
